FAERS Safety Report 19692066 (Version 2)
Quarter: 2021Q3

REPORT INFORMATION
  Report Type: Spontaneous
  Country: US (occurrence: US)
  Receive Date: 20210812
  Receipt Date: 20210903
  Transmission Date: 20211014
  Serious: No
  Sender: FDA-Public Use
  Company Number: US-BAYER-2021-192298

PATIENT
  Age: 28 Year
  Sex: Male

DRUGS (2)
  1. JIVI [Suspect]
     Active Substance: DAMOCTOCOG ALFA PEGOL
     Dosage: 1 DF, ONCE; GIVEN FOR HIT RIGHT HIP
     Dates: start: 20210717
  2. JIVI [Suspect]
     Active Substance: DAMOCTOCOG ALFA PEGOL
     Dosage: 4100 U, UNK

REACTIONS (1)
  - Joint injury [None]

NARRATIVE: CASE EVENT DATE: 20210717
